FAERS Safety Report 5828708-1 (Version None)
Quarter: 2008Q3

REPORT INFORMATION
  Report Type: 
  Country: None (occurrence: None)
  Receive Date: 20080729
  Receipt Date: 20080729
  Transmission Date: 20090109
  Serious: No
  Sender: FDA-Public Use
  Company Number: None

PATIENT
  Sex: Female
  Weight: 63.5036 kg

DRUGS (1)
  1. PORTIA-28 [Suspect]
     Indication: ORAL CONTRACEPTION
     Dosage: 1 TABLET QD PO
     Route: 048
     Dates: start: 20080330, end: 20080630

REACTIONS (2)
  - DYSMENORRHOEA [None]
  - MENSTRUATION IRREGULAR [None]
